FAERS Safety Report 14828964 (Version 2)
Quarter: 2018Q2

REPORT INFORMATION
  Report Type: Spontaneous
  Country: US (occurrence: US)
  Receive Date: 20180430
  Receipt Date: 20180613
  Transmission Date: 20180711
  Serious: Yes (Hospitalization, Other)
  Sender: FDA-Public Use
  Company Number: US-JNJFOC-20180422221

PATIENT
  Age: 44 Year
  Sex: Female

DRUGS (3)
  1. IBUPROFEN. [Suspect]
     Active Substance: IBUPROFEN
     Route: 065
  2. ACETYLSALICYLIC ACID W/CAFFEINE/PARACETAMOL [Suspect]
     Active Substance: ACETAMINOPHEN\ASPIRIN\CAFFEINE\CODEINE PHOSPHATE
     Indication: HEADACHE
     Route: 065
  3. IBUPROFEN. [Suspect]
     Active Substance: IBUPROFEN
     Indication: HEADACHE
     Route: 065

REACTIONS (7)
  - Oesophagitis [Recovered/Resolved]
  - Gastritis [Recovered/Resolved]
  - Obstruction gastric [Recovered/Resolved]
  - Overdose [Unknown]
  - Duodenal ulcer [Recovered/Resolved]
  - Duodenal stenosis [Recovered/Resolved]
  - Bezoar [Recovered/Resolved]
